FAERS Safety Report 15452924 (Version 2)
Quarter: 2018Q4

REPORT INFORMATION
  Report Type: Spontaneous
  Country: ZA (occurrence: ZA)
  Receive Date: 20181001
  Receipt Date: 20181010
  Transmission Date: 20190204
  Serious: Yes (Hospitalization)
  Sender: FDA-Public Use
  Company Number: ZA-PFIZER INC-2018382495

PATIENT
  Age: 71 Year
  Sex: Male

DRUGS (4)
  1. CELEBREX [Suspect]
     Active Substance: CELECOXIB
     Indication: PAIN
     Dosage: 200 MG, DAILY
  2. XEFO [Suspect]
     Active Substance: LORNOXICAM
     Dosage: 8 MG, UNK
  3. BILOCOR [Suspect]
     Active Substance: BISOPROLOL FUMARATE
     Dosage: 5 MG, UNK
  4. ALTOSEC [OMEPRAZOLE] [Suspect]
     Active Substance: OMEPRAZOLE
     Dosage: 20 MG, UNK

REACTIONS (3)
  - Lung infection [Unknown]
  - Dyspnoea [Unknown]
  - Colonic abscess [Unknown]
